FAERS Safety Report 17771881 (Version 1)
Quarter: 2020Q2

REPORT INFORMATION
  Report Type: Spontaneous
  Country: CA (occurrence: CA)
  Receive Date: 20200512
  Receipt Date: 20200512
  Transmission Date: 20200714
  Serious: Yes (Other)
  Sender: FDA-Public Use
  Company Number: CA-TEVA-2020-CA-1234295

PATIENT
  Age: 27 Year
  Sex: Female

DRUGS (3)
  1. CLONAZEPAM. [Suspect]
     Active Substance: CLONAZEPAM
     Indication: INSOMNIA
     Route: 065
  2. MIDAZOLAM. [Interacting]
     Active Substance: MIDAZOLAM
     Indication: INSOMNIA
     Route: 065
  3. VISANNE [Interacting]
     Active Substance: DIENOGEST
     Indication: ENDOMETRIOSIS
     Route: 065

REACTIONS (6)
  - Hypomenorrhoea [Not Recovered/Not Resolved]
  - Off label use [Not Recovered/Not Resolved]
  - Genital haemorrhage [Not Recovered/Not Resolved]
  - Abdominal pain [Not Recovered/Not Resolved]
  - Drug ineffective for unapproved indication [Not Recovered/Not Resolved]
  - Drug interaction [Not Recovered/Not Resolved]
